FAERS Safety Report 15075224 (Version 1)
Quarter: 2018Q2

REPORT INFORMATION
  Report Type: Report from Study
  Country: US (occurrence: US)
  Receive Date: 20180627
  Receipt Date: 20180627
  Transmission Date: 20180711
  Serious: Yes (Other)
  Sender: FDA-Public Use
  Company Number: US-SAOL THERAPEUTICS-2018SAO00059

PATIENT
  Age: 73 Year
  Sex: Male
  Weight: 110.66 kg

DRUGS (24)
  1. DILAUDID [Suspect]
     Active Substance: HYDROMORPHONE HYDROCHLORIDE
     Dosage: 0.8012 MG, \DAY
     Route: 037
     Dates: start: 20161215, end: 20170323
  2. DILAUDID [Suspect]
     Active Substance: HYDROMORPHONE HYDROCHLORIDE
     Dosage: 0.299 MG, \DAY
     Route: 037
     Dates: start: 20170601
  3. BUPIVACAINE. [Suspect]
     Active Substance: BUPIVACAINE
     Dosage: 16.023 MG, \DAY
     Route: 037
     Dates: start: 20161215, end: 20170323
  4. CLONIDINE. [Suspect]
     Active Substance: CLONIDINE
     Dosage: 106.82 ?G, \DAY
     Route: 037
     Dates: start: 20161215, end: 20170323
  5. CLONIDINE. [Suspect]
     Active Substance: CLONIDINE
     Dosage: 118.98 ?G, \DAY; MAX DOSE
     Route: 037
     Dates: start: 20170323, end: 20170601
  6. DILAUDID [Suspect]
     Active Substance: HYDROMORPHONE HYDROCHLORIDE
     Dosage: 0.600 MG, \DAY
     Route: 037
     Dates: start: 20170323, end: 20170601
  7. CLONIDINE. [Suspect]
     Active Substance: CLONIDINE
     Dosage: 80.12 ?G, \DAY
     Route: 037
     Dates: start: 20170323, end: 20170601
  8. CLONIDINE. [Suspect]
     Active Substance: CLONIDINE
     Dosage: 39.97 ?G, \DAY
     Route: 037
     Dates: start: 20170601
  9. COMPOUNDED BACLOFEN [Suspect]
     Active Substance: BACLOFEN
     Dosage: 275.70 ?G, \DAY; MAX DOSE
     Route: 037
     Dates: start: 20161215, end: 20170323
  10. DILAUDID [Suspect]
     Active Substance: HYDROMORPHONE HYDROCHLORIDE
     Dosage: 0.892 MG, \DAY; MAX DOSE
     Route: 037
     Dates: start: 20170323, end: 20170601
  11. DILAUDID [Suspect]
     Active Substance: HYDROMORPHONE HYDROCHLORIDE
     Dosage: 0.595 MG, \DAY; MAX DOSE
     Route: 037
     Dates: start: 20170601
  12. BUPIVACAINE. [Suspect]
     Active Substance: BUPIVACAINE
     Dosage: 27.570 MG, \DAY; MAX DOSE
     Route: 037
     Dates: start: 20161215, end: 20170323
  13. BUPIVACAINE. [Suspect]
     Active Substance: BUPIVACAINE
     Dosage: 5.996 MG, \DAY
     Route: 037
     Dates: start: 20170601
  14. COMPOUNDED BACLOFEN [Suspect]
     Active Substance: BACLOFEN
     Dosage: 160.23 ?G, \DAY
     Route: 037
     Dates: start: 20161215, end: 20170323
  15. COMPOUNDED BACLOFEN [Suspect]
     Active Substance: BACLOFEN
     Dosage: 120.17 ?G, \DAY
     Route: 037
     Dates: start: 20170323, end: 20170601
  16. BUPIVACAINE. [Suspect]
     Active Substance: BUPIVACAINE
     Dosage: 11.909 MG, \DAY; MAX DOSE
     Route: 037
     Dates: start: 20170601
  17. CLONIDINE. [Suspect]
     Active Substance: CLONIDINE
     Dosage: 79.39 ?G, \DAY; MAX DOSE
     Route: 037
     Dates: start: 20170601
  18. COMPOUNDED BACLOFEN [Suspect]
     Active Substance: BACLOFEN
     Dosage: 119.09 ?G, \DAY; MAX DOSE
     Route: 037
     Dates: start: 20170601
  19. BUPIVACAINE. [Suspect]
     Active Substance: BUPIVACAINE
     Dosage: 17.847 MG, \DAY; MAX DOSE
     Route: 037
     Dates: start: 20170323, end: 20170601
  20. CLONIDINE. [Suspect]
     Active Substance: CLONIDINE
     Dosage: 183.80 ?G, \DAY; MAX DOSE
     Route: 037
     Dates: start: 20161215, end: 20170323
  21. COMPOUNDED BACLOFEN [Suspect]
     Active Substance: BACLOFEN
     Dosage: 178.47 ?G, \DAY; MAX DOSE
     Route: 037
     Dates: start: 20170323, end: 20170601
  22. DILAUDID [Suspect]
     Active Substance: HYDROMORPHONE HYDROCHLORIDE
     Dosage: 1.378 MG, \DAY; MAX DOSE
     Route: 037
     Dates: start: 20161215, end: 20170323
  23. COMPOUNDED BACLOFEN [Suspect]
     Active Substance: BACLOFEN
     Dosage: 59.96 ?G, \DAY
     Route: 037
     Dates: start: 20170601
  24. BUPIVACAINE. [Suspect]
     Active Substance: BUPIVACAINE
     Dosage: 12.017 MG, \DAY
     Route: 037
     Dates: start: 20170323, end: 20170601

REACTIONS (6)
  - Therapy non-responder [Recovered/Resolved]
  - Hypoaesthesia [Recovered/Resolved]
  - Pain in extremity [Recovered/Resolved]
  - Fall [Recovered/Resolved]
  - Dizziness [Recovered/Resolved]
  - Nausea [Recovered/Resolved]

NARRATIVE: CASE EVENT DATE: 20170209
